FAERS Safety Report 24280826 (Version 1)
Quarter: 2024Q3

REPORT INFORMATION
  Report Type: Spontaneous
  Country: DE (occurrence: DE)
  Receive Date: 20240904
  Receipt Date: 20240904
  Transmission Date: 20241017
  Serious: Yes (Other)
  Sender: AUROBINDO
  Company Number: DE-CADRBFARM-2024330075

PATIENT
  Age: 55 Year
  Sex: Female
  Weight: 57 kg

DRUGS (1)
  1. AMOXICILLIN TRIHYDRATE [Suspect]
     Active Substance: AMOXICILLIN
     Indication: Tonsillitis
     Dosage: 500 MILLIGRAM, 3 TIMES A DAY (1-1-1)
     Route: 048
     Dates: start: 20240814, end: 20240821

REACTIONS (3)
  - Postmenopausal haemorrhage [Recovered/Resolved]
  - Depression [Recovering/Resolving]
  - Crying [Recovering/Resolving]

NARRATIVE: CASE EVENT DATE: 20240815
